FAERS Safety Report 6816447-X (Version None)
Quarter: 2010Q2

REPORT INFORMATION
  Report Type: 
  Country: None (occurrence: None)
  Receive Date: 20100630
  Receipt Date: 20100616
  Transmission Date: 20101027
  Serious: Yes (Other)
  Sender: FDA-Public Use
  Company Number: WAES 1006USA03920

PATIENT
  Age: 68 Year
  Sex: Female

DRUGS (10)
  1. DECADRON [Suspect]
     Dosage: PO
     Route: 048
     Dates: start: 20100310, end: 20100603
  2. SODIUM PHOSPHATES [Concomitant]
  3. FOSAMAX [Concomitant]
  4. ACETAMINOPHEN [Concomitant]
  5. ACETAMINOPHEN W/ PROPOXYPHENE HCL [Concomitant]
  6. ASPARAGUS [Concomitant]
  7. HYDROCHLOROTHIAZIDE [Concomitant]
  8. LORAZEPAM [Concomitant]
  9. MK-2206 [Concomitant]
  10. PROCHLORPERAZINE [Concomitant]

REACTIONS (12)
  - ALOPECIA [None]
  - CONSTIPATION [None]
  - DISEASE PROGRESSION [None]
  - DIZZINESS [None]
  - DYSPNOEA [None]
  - FATIGUE [None]
  - HAEMOGLOBIN DECREASED [None]
  - HYPERGLYCAEMIA [None]
  - HYPERTENSION [None]
  - NAUSEA [None]
  - OSTEOPOROSIS [None]
  - PAIN [None]
